FAERS Safety Report 8764735 (Version 2)
Quarter: 2012Q4

REPORT INFORMATION
  Report Type: 
  Country: FR (occurrence: FR)
  Receive Date: 20120831
  Receipt Date: 20120919
  Transmission Date: 20130627
  Serious: Yes (Hospitalization)
  Sender: FDA-Public Use
  Company Number: FR-ELI_LILLY_AND_COMPANY-FR201202005236

PATIENT
  Age: 51 Year
  Sex: Female

DRUGS (6)
  1. FORSTEO [Suspect]
     Indication: HYPOCALCAEMIA
     Dosage: 20 UNK, UNK
     Route: 058
     Dates: start: 20120214, end: 20120215
  2. CALCIUM [Concomitant]
     Indication: HYPOCALCAEMIA
     Dosage: 1000 DF, bid
  3. VITAMIN D NOS [Concomitant]
     Indication: HYPOCALCAEMIA
  4. UN-ALFA [Concomitant]
     Dosage: 1 ug, tid
  5. COUMADINE [Concomitant]
     Dosage: 2 mg, qd
  6. TRAMADOL [Concomitant]

REACTIONS (10)
  - Pyrexia [Recovered/Resolved]
  - Pyrexia [Recovered/Resolved]
  - Tremor [Recovered/Resolved]
  - Tremor [Recovered/Resolved]
  - Hot flush [Recovered/Resolved]
  - Hot flush [Recovered/Resolved]
  - Malaise [Recovered/Resolved]
  - Malaise [Recovered/Resolved]
  - Hypersensitivity [Recovered/Resolved]
  - Off label use [Recovered/Resolved]
